FAERS Safety Report 9163257 (Version 1)
Quarter: 2013Q1

REPORT INFORMATION
  Report Type: Spontaneous
  Country: US (occurrence: None)
  Receive Date: 20130313
  Receipt Date: 20130313
  Transmission Date: 20140127
  Serious: Yes (Other)
  Sender: FDA-Public Use
  Company Number: None

PATIENT
  Age: 57 Year
  Sex: Female
  Weight: 56.7 kg

DRUGS (1)
  1. LASTACAFT [Suspect]
     Indication: EYE ALLERGY
     Dosage: 1 DROP TWICE A DAY 1 WEEK OTHER
     Dates: start: 20121105, end: 20121112

REACTIONS (4)
  - Ocular hyperaemia [None]
  - Photophobia [None]
  - Headache [None]
  - Ocular hyperaemia [None]
